FAERS Safety Report 4879738-8 (Version None)
Quarter: 2006Q1

REPORT INFORMATION
  Report Type: 
  Country: None (occurrence: None)
  Receive Date: 20060111
  Receipt Date: 20051229
  Transmission Date: 20060701
  Serious: Yes (Life-Threatening, Other)
  Sender: FDA-Public Use
  Company Number: HQWYE164803JAN06

PATIENT
  Age: 42 Year
  Sex: Female

DRUGS (2)
  1. PANTECTA (PANTOPRAZOLE, TABLET, DELAYED RELEASE) [Suspect]
     Indication: DUODENITIS
     Dosage: 40 MG, ORAL
     Route: 048
     Dates: start: 20051130, end: 20051220
  2. PANTECTA (PANTOPRAZOLE, TABLET, DELAYED RELEASE) [Suspect]
     Indication: GASTRITIS
     Dosage: 40 MG, ORAL
     Route: 048
     Dates: start: 20051130, end: 20051220

REACTIONS (3)
  - DYSPNOEA [None]
  - LARYNGEAL OEDEMA [None]
  - URTICARIA [None]
